FAERS Safety Report 15431614 (Version 1)
Quarter: 2018Q3

REPORT INFORMATION
  Report Type: Spontaneous
  Country: JP (occurrence: JP)
  Receive Date: 20180926
  Receipt Date: 20180926
  Transmission Date: 20181010
  Serious: Yes (Other)
  Sender: FDA-Public Use
  Company Number: PHJP2018JP016829

PATIENT
  Age: 13 Year
  Sex: Male

DRUGS (5)
  1. LEVETIRACETAM. [Concomitant]
     Active Substance: LEVETIRACETAM
     Indication: GENERALISED TONIC-CLONIC SEIZURE
     Dosage: 250 MG, QD
     Route: 065
  2. LEVETIRACETAM. [Concomitant]
     Active Substance: LEVETIRACETAM
     Dosage: UNK
     Route: 065
  3. VALPROATE [Concomitant]
     Active Substance: VALPROIC ACID
     Dosage: UNK
     Route: 048
  4. CARBAMAZEPINE. [Suspect]
     Active Substance: CARBAMAZEPINE
     Indication: GENERALISED TONIC-CLONIC SEIZURE
     Dosage: 300 MG, UNK
     Route: 048
  5. VALPROATE [Concomitant]
     Active Substance: VALPROIC ACID
     Indication: GENERALISED TONIC-CLONIC SEIZURE
     Dosage: 200 MG, UNK
     Route: 065

REACTIONS (1)
  - Frontal lobe epilepsy [Recovered/Resolved]
